FAERS Safety Report 16333173 (Version 1)
Quarter: 2019Q2

REPORT INFORMATION
  Report Type: Spontaneous
  Country: US (occurrence: US)
  Receive Date: 20190520
  Receipt Date: 20190520
  Transmission Date: 20190711
  Serious: No
  Sender: FDA-Public Use
  Company Number: US-CARDINAL HEALTH 414, LLC-2067191

PATIENT
  Age: 63 Year
  Sex: Female

DRUGS (11)
  1. PREDNISONE. [Concomitant]
     Active Substance: PREDNISONE
  2. DOXYCYCLINE. [Concomitant]
     Active Substance: DOXYCYCLINE
  3. FOSAMAX [Concomitant]
     Active Substance: ALENDRONATE SODIUM
  4. PLAQUENIL [Concomitant]
     Active Substance: HYDROXYCHLOROQUINE SULFATE
  5. ADVAIR DISKUS [Concomitant]
     Active Substance: FLUTICASONE PROPIONATE\SALMETEROL XINAFOATE
  6. TECHNETIUM TC-99M SESTAMIBI KIT [Suspect]
     Active Substance: TECHNETIUM TC-99M SESTAMIBI
     Indication: SCAN PARATHYROID
     Route: 042
     Dates: start: 20181009, end: 20181009
  7. FLUNISOLIDE. [Concomitant]
     Active Substance: FLUNISOLIDE
  8. ROBAXIN [Concomitant]
     Active Substance: METHOCARBAMOL
  9. FOLIC ACID. [Concomitant]
     Active Substance: FOLIC ACID
  10. ALBUTEROL. [Concomitant]
     Active Substance: ALBUTEROL
  11. METHOTREXATE. [Concomitant]
     Active Substance: METHOTREXATE

REACTIONS (7)
  - Hot flush [Recovered/Resolved]
  - Off label use [Recovered/Resolved]
  - Pain in extremity [Recovered/Resolved]
  - Peripheral swelling [Recovered/Resolved]
  - Hepatic pain [Recovered/Resolved]
  - Neuropathy peripheral [Recovered/Resolved]
  - Chills [Recovered/Resolved]

NARRATIVE: CASE EVENT DATE: 20181009
